FAERS Safety Report 8716288 (Version 2)
Quarter: 2013Q4

REPORT INFORMATION
  Report Type: Spontaneous
  Country: JP (occurrence: JP)
  Receive Date: 20120810
  Receipt Date: 20131031
  Transmission Date: 20140711
  Serious: Yes (Other)
  Sender: FDA-Public Use
  Company Number: JP-009507513-2011SP000080

PATIENT
  Age: 30 Year
  Sex: Female

DRUGS (6)
  1. REFLEX [Suspect]
     Indication: PRODUCT USED FOR UNKNOWN INDICATION
     Dosage: 30 MG, QD
     Route: 048
  2. REFLEX [Suspect]
     Dosage: 8 DF, ONCE
     Route: 048
  3. FLUNITRAZEPAM [Suspect]
     Indication: PRODUCT USED FOR UNKNOWN INDICATION
     Dosage: UNK UNK, UNKNOWN
     Route: 048
  4. FLUNITRAZEPAM [Suspect]
     Dosage: 4 DF, ONCE
     Route: 048
  5. ZOLPIDEM TARTRATE [Suspect]
     Indication: PRODUCT USED FOR UNKNOWN INDICATION
     Dosage: UNK UNK, UNKNOWN
     Route: 048
  6. ZOLPIDEM TARTRATE [Suspect]
     Dosage: 8 DF, ONCE
     Route: 048

REACTIONS (1)
  - Overdose [Unknown]
